FAERS Safety Report 6864362-8 (Version None)
Quarter: 2010Q3

REPORT INFORMATION
  Report Type: 
  Country: None (occurrence: None)
  Receive Date: 20100721
  Receipt Date: 20080324
  Transmission Date: 20110219
  Serious: No
  Sender: FDA-Public Use
  Company Number: US-PFIZER INC-2008026349

PATIENT
  Sex: Female
  Weight: 81.818 kg

DRUGS (10)
  1. CHANTIX [Suspect]
     Indication: SMOKING CESSATION THERAPY
     Route: 048
     Dates: start: 20080120, end: 20080201
  2. EFFEXOR [Concomitant]
  3. POTASSIUM CHLORIDE [Concomitant]
  4. LISINOPRIL [Concomitant]
  5. PLAVIX [Concomitant]
  6. LASIX [Concomitant]
  7. CELEBREX [Concomitant]
  8. ZETIA [Concomitant]
  9. ALPRAZOLAM [Concomitant]
  10. TRAZODONE HYDROCHLORIDE [Concomitant]

REACTIONS (3)
  - ABDOMINAL DISCOMFORT [None]
  - INFLUENZA [None]
  - MALAISE [None]
